FAERS Safety Report 16126288 (Version 1)
Quarter: 2019Q1

REPORT INFORMATION
  Report Type: Spontaneous
  Country: GB (occurrence: GB)
  Receive Date: 20190328
  Receipt Date: 20190328
  Transmission Date: 20190418
  Serious: Yes (Death, Other)
  Sender: FDA-Public Use
  Company Number: GB-TEVA-2019-GB-1030707

PATIENT
  Age: 34 Year
  Sex: Male
  Weight: 58 kg

DRUGS (5)
  1. BECLOMETASONE [Concomitant]
     Active Substance: BECLOMETHASONE DIPROPIONATE
  2. SOTALOL HYDROCHLORIDE. [Concomitant]
     Active Substance: SOTALOL HYDROCHLORIDE
  3. SODIUM VALPROATE [Concomitant]
     Active Substance: VALPROATE SODIUM
  4. AMIODARONE HYDROCHLORIDE. [Suspect]
     Active Substance: AMIODARONE HYDROCHLORIDE
     Indication: ARRHYTHMIA
     Dosage: LOADING DOSE
     Route: 048
     Dates: start: 20171015
  5. AMIODARONE HYDROCHLORIDE. [Suspect]
     Active Substance: AMIODARONE HYDROCHLORIDE
     Route: 048
     Dates: start: 201710, end: 20180118

REACTIONS (7)
  - Rash generalised [Fatal]
  - Peripheral swelling [Fatal]
  - Contraindicated product prescribed [Fatal]
  - Skin exfoliation [Fatal]
  - Prescribed overdose [Fatal]
  - Contusion [Fatal]
  - Angiosarcoma [Fatal]

NARRATIVE: CASE EVENT DATE: 20171130
